FAERS Safety Report 15785398 (Version 1)
Quarter: 2019Q1

REPORT INFORMATION
  Report Type: Spontaneous
  Country: US (occurrence: US)
  Receive Date: 20190102
  Receipt Date: 20190102
  Transmission Date: 20190417
  Serious: Yes (Other)
  Sender: FDA-Public Use
  Company Number: None

PATIENT
  Age: 61 Year
  Sex: Male
  Weight: 72 kg

DRUGS (3)
  1. KEYTRUDA [Suspect]
     Active Substance: PEMBROLIZUMAB
     Indication: NON-SMALL CELL LUNG CANCER
     Dosage: OTHER FREQUENCY:EVERY 21 DAYS;?
     Route: 041
     Dates: start: 20181207, end: 20181207
  2. CARBOPLATIN. [Concomitant]
     Active Substance: CARBOPLATIN
     Dates: start: 20181207, end: 20181207
  3. PEMETREXED. [Concomitant]
     Active Substance: PEMETREXED
     Dates: start: 20181207, end: 20181207

REACTIONS (1)
  - Hepatic enzyme increased [None]

NARRATIVE: CASE EVENT DATE: 20181228
